FAERS Safety Report 9745603 (Version 1)
Quarter: 2013Q4

REPORT INFORMATION
  Report Type: Spontaneous
  Country: US (occurrence: None)
  Receive Date: 20131205
  Receipt Date: 20131205
  Transmission Date: 20140711
  Serious: No
  Sender: FDA-Public Use
  Company Number: None

PATIENT
  Age: 44 Year
  Sex: Male

DRUGS (7)
  1. TECFIDERA [Suspect]
     Indication: MULTIPLE SCLEROSIS
     Route: 048
  2. OXYBUTYNIN [Concomitant]
  3. BACLOFEN [Concomitant]
  4. ALEVE [Concomitant]
  5. MARINOL [Concomitant]
  6. VITAMIN D [Concomitant]
  7. VITAMIN B-12 [Concomitant]

REACTIONS (2)
  - Gastrooesophageal reflux disease [None]
  - Condition aggravated [None]
